FAERS Safety Report 9838327 (Version 2)
Quarter: 2014Q1

REPORT INFORMATION
  Report Type: Report from Study
  Country: FR (occurrence: FR)
  Receive Date: 20140123
  Receipt Date: 20140214
  Transmission Date: 20141002
  Serious: Yes (Hospitalization, Other)
  Sender: FDA-Public Use
  Company Number: FR-CELGENEUS-056-POMAL-14012197

PATIENT
  Age: 66 Year
  Sex: Female

DRUGS (2)
  1. IMNOVID [Suspect]
     Indication: PLASMA CELL MYELOMA
     Dosage: 1 MILLIGRAM
     Route: 048
     Dates: start: 20140104, end: 20140113
  2. INNOHEP [Concomitant]
     Indication: THROMBOSIS PROPHYLAXIS
     Route: 065

REACTIONS (2)
  - Pancytopenia [Unknown]
  - Plasma cell myeloma [Unknown]
